FAERS Safety Report 9722941 (Version 1)
Quarter: 2013Q4

REPORT INFORMATION
  Report Type: Spontaneous
  Country: CA (occurrence: CA)
  Receive Date: 20131202
  Receipt Date: 20131202
  Transmission Date: 20140711
  Serious: Yes (Hospitalization)
  Sender: FDA-Public Use
  Company Number: CA-AMGEN-CANSP2013084564

PATIENT
  Age: 50 Year
  Sex: Male

DRUGS (4)
  1. NEUPOGEN [Suspect]
     Indication: PRODUCT USED FOR UNKNOWN INDICATION
     Dosage: UNK
     Route: 065
  2. BLEOMYCIN [Concomitant]
     Indication: TESTIS CANCER
     Dosage: UNK
  3. ETOPOSIDE [Concomitant]
     Indication: TESTIS CANCER
     Dosage: UNK
  4. CISPLATIN [Concomitant]
     Indication: TESTIS CANCER
     Dosage: UNK

REACTIONS (1)
  - Febrile neutropenia [Unknown]
